FAERS Safety Report 9515661 (Version 2)
Quarter: 2014Q1

REPORT INFORMATION
  Report Type: Spontaneous
  Country: US (occurrence: None)
  Receive Date: 20130305
  Receipt Date: 20140306
  Transmission Date: 20141002
  Serious: Yes (Hospitalization, Other)
  Sender: FDA-Public Use
  Company Number: 163-21880-12103632

PATIENT
  Age: 71 Year
  Sex: Male
  Weight: 61.55 kg

DRUGS (19)
  1. REVLIMID (LENALIDOMIDE) (15 MILLIGRAM, CAPSULES) [Suspect]
     Indication: PLASMA CELL MYELOMA
     Route: 048
     Dates: start: 20120112, end: 2012
  2. DEXAMETHASONE (DEXAMETHASONE) (UNKNOWN) [Concomitant]
  3. AREDIA (PAMIDRONATE DISODIUM) (UNKNOWN) [Concomitant]
  4. LEVOTHYROXINE SODIUM [Concomitant]
  5. DURAGESIC (FENTANYL) [Concomitant]
  6. OMEPRAZOLE [Concomitant]
  7. HYDROCHLORTHIAZIDE [Concomitant]
  8. DILAUDID (HYDROMORPHONE HYDROCHLORIDE) [Concomitant]
  9. AMLODIPINE BESYLATE [Concomitant]
  10. ATENOLOL [Concomitant]
  11. POTASSIUM CHLORIDE [Concomitant]
  12. GABAPENTIN [Concomitant]
  13. ATIVAN (LORAZEPAM) [Concomitant]
  14. CYANOCOBALAMIN [Concomitant]
  15. VITAMIN C (ASCORBIC ACID) [Concomitant]
  16. CALTRATE 600 + VITAMIN D (CALCITE D) [Concomitant]
  17. BACLOFEN [Concomitant]
  18. ASPIRIN (ACETYLSALICYLIC ACID) [Concomitant]
  19. PRAVASTATIN SODIUM [Concomitant]

REACTIONS (2)
  - Deep vein thrombosis [None]
  - Pulmonary embolism [None]
